FAERS Safety Report 5193465-1 (Version None)
Quarter: 2006Q4

REPORT INFORMATION
  Report Type: 
  Country: None (occurrence: None)
  Receive Date: 20061228
  Receipt Date: 20060502
  Transmission Date: 20070319
  Serious: No
  Sender: FDA-Public Use
  Company Number: US-GLAXOSMITHKLINE-A0604103A

PATIENT
  Sex: Male

DRUGS (9)
  1. FLONASE [Suspect]
     Dosage: 2SPR PER DAY
     Route: 045
     Dates: start: 20060202, end: 20060401
  2. LIPITOR [Concomitant]
  3. FAMOTIDINE [Concomitant]
  4. LISINOPRIL AND HYDROCHLOROTHIAZIDE [Concomitant]
  5. TOPROL-XL [Concomitant]
  6. ASPIRIN [Concomitant]
  7. NORVASC [Concomitant]
  8. GLUCOSAMINE HYDROCHLORIDE [Concomitant]
  9. CHONDROITIN SULFATE [Concomitant]

REACTIONS (1)
  - EPISTAXIS [None]
